FAERS Safety Report 5855595-8 (Version None)
Quarter: 2008Q3

REPORT INFORMATION
  Report Type: 
  Country: None (occurrence: None)
  Receive Date: 20080821
  Receipt Date: 20080805
  Transmission Date: 20090109
  Serious: Yes (Hospitalization)
  Sender: FDA-Public Use
  Company Number: 2008BI019870

PATIENT
  Age: 44 Year
  Sex: Female

DRUGS (5)
  1. TYSABRI [Suspect]
     Indication: MULTIPLE SCLEROSIS
     Dosage: 300 MG; QM; IV
     Route: 042
     Dates: start: 20071126
  2. ORAL CONPRACEPTIVE [Concomitant]
  3. AVONEX [Concomitant]
  4. BETASERON [Concomitant]
  5. AZATHIOPRINE [Concomitant]

REACTIONS (2)
  - ESCHERICHIA BACTERAEMIA [None]
  - ESCHERICHIA URINARY TRACT INFECTION [None]
